FAERS Safety Report 7047576-6 (Version None)
Quarter: 2010Q4

REPORT INFORMATION
  Report Type: 
  Country: None (occurrence: None)
  Receive Date: 20101015
  Receipt Date: 20101004
  Transmission Date: 20110411
  Serious: Yes (Other)
  Sender: FDA-Public Use
  Company Number: US-ELI_LILLY_AND_COMPANY-US201010000557

PATIENT
  Age: 54 Year
  Sex: Female
  Weight: 140 kg

DRUGS (2)
  1. CYMBALTA [Suspect]
     Indication: DEPRESSION
     Dosage: UNK, UNKNOWN
     Route: 048
     Dates: start: 20080101
  2. LYRICA [Concomitant]
     Indication: FIBROMYALGIA
     Dosage: 25 MG, DAILY (1/D)
     Route: 048
     Dates: start: 20080101

REACTIONS (2)
  - BREAST CANCER [None]
  - VOMITING [None]
